FAERS Safety Report 6782398-2 (Version None)
Quarter: 2010Q2

REPORT INFORMATION
  Report Type: 
  Country: None (occurrence: None)
  Receive Date: 20100621
  Receipt Date: 20100607
  Transmission Date: 20101027
  Serious: Yes (Hospitalization)
  Sender: FDA-Public Use
  Company Number: DE-MYLANLABS-2009S1005822

PATIENT
  Age: 84 Year
  Sex: Female
  Weight: 70 kg

DRUGS (7)
  1. IBUPROFEN [Suspect]
     Indication: OSTEOARTHRITIS
     Dosage: APPLIKATION BEI BEDARF
     Route: 048
     Dates: start: 20080601, end: 20080805
  2. AGGRENOX [Suspect]
     Indication: THROMBOSIS PROPHYLAXIS
     Dosage: 1 DF = 200MG DIPYRIDAMOL + 25MG ASS
     Route: 048
     Dates: start: 20060501, end: 20080805
  3. ENABETA COMP [Suspect]
     Indication: HYPERTENSION
     Dosage: 1 DF = 10MG ENALAPRIL + 25MG HCT
     Route: 048
     Dates: start: 20060501, end: 20080805
  4. INDOMETHACIN SODIUM [Suspect]
     Indication: OSTEOARTHRITIS
     Dosage: APPLIKATION BEI BEDARF
     Route: 048
     Dates: start: 20080601, end: 20080701
  5. FELOCOR [Concomitant]
     Indication: HYPERTENSION
     Route: 048
     Dates: start: 20000101
  6. LEVOTHYROXINE SODIUM [Concomitant]
     Indication: HYPOTHYROIDISM
     Route: 048
     Dates: start: 19780101
  7. METOCLOPRAMIDE [Concomitant]
     Indication: NAUSEA
     Route: 048
     Dates: start: 20080701, end: 20080808

REACTIONS (3)
  - BLOOD POTASSIUM DECREASED [None]
  - BLOOD SODIUM DECREASED [None]
  - GASTRITIS EROSIVE [None]
